FAERS Safety Report 14889559 (Version 1)
Quarter: 2018Q2

REPORT INFORMATION
  Report Type: Spontaneous
  Country: CA (occurrence: CA)
  Receive Date: 20180514
  Receipt Date: 20180514
  Transmission Date: 20180711
  Serious: Yes (Hospitalization, Other)
  Sender: FDA-Public Use
  Company Number: CA-STRIDES ARCOLAB LIMITED-2018SP003476

PATIENT

DRUGS (9)
  1. AMANTADINE HYDROCHLORIDE. [Suspect]
     Active Substance: AMANTADINE HYDROCHLORIDE
     Indication: PARKINSON^S DISEASE
     Dosage: 300 MG PER DAY
     Route: 065
  2. LEVODOPA/CARBIDOPA [Suspect]
     Active Substance: CARBIDOPA\LEVODOPA
     Indication: PARKINSON^S DISEASE
     Dosage: 1000/250 MG PER DAY
     Route: 065
  3. LEVODOPA/CARBIDOPA [Suspect]
     Active Substance: CARBIDOPA\LEVODOPA
     Dosage: 100/25 MG PER DAY (CONTROLLED-RELEASE)
     Route: 065
  4. NABILONE [Suspect]
     Active Substance: NABILONE
     Indication: DYSTONIA
     Dosage: 1 MG, UNKNOWN
     Route: 065
  5. LEVODOPA/CARBIDOPA [Suspect]
     Active Substance: CARBIDOPA\LEVODOPA
     Dosage: 1000/250 MG PER DAY (REDUCED EVERY 2.5 HOURS)
     Route: 065
  6. PRAMIPEXOLE DIHYDROCHLORIDE. [Suspect]
     Active Substance: PRAMIPEXOLE DIHYDROCHLORIDE
     Indication: PARKINSON^S DISEASE
     Dosage: 4.5 MG PER DAY
     Route: 065
  7. PRAMIPEXOLE DIHYDROCHLORIDE. [Suspect]
     Active Substance: PRAMIPEXOLE DIHYDROCHLORIDE
     Dosage: REDUCED FROM 1.5 TO 0.75 MG
     Route: 065
  8. ENTACAPONE. [Suspect]
     Active Substance: ENTACAPONE
     Indication: PARKINSON^S DISEASE
     Dosage: 1000 MG PER DAY
     Route: 065
  9. QUETIAPINE. [Concomitant]
     Active Substance: QUETIAPINE
     Indication: PARKINSON^S DISEASE
     Dosage: 12.5 MG, AT BED TIME
     Route: 065

REACTIONS (9)
  - Condition aggravated [Recovered/Resolved]
  - Psychotic disorder [Recovered/Resolved]
  - Paranoia [Recovered/Resolved]
  - Dyskinesia [Recovered/Resolved]
  - Hallucination, visual [Not Recovered/Not Resolved]
  - Speech disorder [Recovered/Resolved]
  - Drug ineffective [Unknown]
  - Panic disorder [Recovered/Resolved]
  - Delusion [Not Recovered/Not Resolved]
